FAERS Safety Report 21974814 (Version 2)
Quarter: 2023Q1

REPORT INFORMATION
  Report Type: Spontaneous
  Country: FR (occurrence: FR)
  Receive Date: 20230209
  Receipt Date: 20230216
  Transmission Date: 20230418
  Serious: Yes (Hospitalization, Disabling, Other)
  Sender: FDA-Public Use
  Company Number: FR-009507513-2302FRA002479

PATIENT
  Age: 47 Year
  Sex: Female
  Weight: 104 kg

DRUGS (3)
  1. KEYTRUDA [Suspect]
     Active Substance: PEMBROLIZUMAB
     Indication: Triple negative breast cancer
     Dosage: 200 MILLIGRAM, Q3W
     Route: 042
     Dates: start: 20220503, end: 20230105
  2. TAXOL [Concomitant]
     Active Substance: PACLITAXEL
     Indication: Triple negative breast cancer
     Dosage: 60 MILLIGRAM/SQ. METER
     Route: 042
     Dates: start: 20220503, end: 20221103
  3. LETROZOLE [Concomitant]
     Active Substance: LETROZOLE
     Indication: Triple negative breast cancer
     Dosage: 2.5 MILLIGRAM DAILY
     Route: 048
     Dates: start: 2019

REACTIONS (9)
  - Pneumonia influenzal [Recovering/Resolving]
  - Encephalitis [Recovering/Resolving]
  - Septic shock [Recovering/Resolving]
  - Adrenal insufficiency [Unknown]
  - Hypercalcaemia of malignancy [Recovering/Resolving]
  - Hypercalcaemia of malignancy [Recovered/Resolved]
  - Electrocardiogram abnormal [Recovered/Resolved]
  - Hypophysitis [Recovering/Resolving]
  - Malignant neoplasm progression [Unknown]

NARRATIVE: CASE EVENT DATE: 20221215
